FAERS Safety Report 17654098 (Version 1)
Quarter: 2020Q2

REPORT INFORMATION
  Report Type: Spontaneous
  Country: US (occurrence: US)
  Receive Date: 20200410
  Receipt Date: 20200410
  Transmission Date: 20200713
  Serious: No
  Sender: FDA-Public Use
  Company Number: US-ELI_LILLY_AND_COMPANY-US202004003464

PATIENT
  Sex: Female

DRUGS (3)
  1. LANTUS [Concomitant]
     Active Substance: INSULIN GLARGINE
     Indication: PRODUCT USED FOR UNKNOWN INDICATION
     Dosage: 70-72 U, PRN (DEPENDING ON WHAT HER NUMBERS ARE)
  2. HUMALOG [Suspect]
     Active Substance: INSULIN LISPRO
     Indication: PRODUCT USED FOR UNKNOWN INDICATION
     Dosage: 10-12 U, PRN (EACH MEAL)
     Route: 065
     Dates: start: 202002
  3. HUMALOG [Suspect]
     Active Substance: INSULIN LISPRO
     Dosage: 20-30 U, PRN (EACH MEAL)
     Route: 065

REACTIONS (3)
  - Overweight [Unknown]
  - Blood glucose increased [Recovered/Resolved]
  - Hypertension [Unknown]
